FAERS Safety Report 12772811 (Version 2)
Quarter: 2016Q4

REPORT INFORMATION
  Report Type: Spontaneous
  Country: BR (occurrence: BR)
  Receive Date: 20160922
  Receipt Date: 20161021
  Transmission Date: 20170207
  Serious: Yes (Other)
  Sender: FDA-Public Use
  Company Number: PHHY2016BR128666

PATIENT
  Sex: Female
  Weight: 60 kg

DRUGS (3)
  1. SIMVASTATIN. [Concomitant]
     Active Substance: SIMVASTATIN
     Indication: BLOOD CHOLESTEROL
     Dosage: 1 TABLET PER DAY
     Route: 048
  2. TOPIRAMATE. [Suspect]
     Active Substance: TOPIRAMATE
     Indication: PAIN IN EXTREMITY
     Dosage: 25 MG, QD
     Route: 048
  3. ENALAPRIL [Concomitant]
     Active Substance: ENALAPRIL
     Indication: HYPERTENSION
     Dosage: 25 MG, QD
     Route: 048

REACTIONS (10)
  - Off label use [Unknown]
  - Drug administration error [Unknown]
  - Head discomfort [Recovering/Resolving]
  - Depression [Recovering/Resolving]
  - Fall [Recovering/Resolving]
  - Memory impairment [Recovering/Resolving]
  - Mutism [Recovering/Resolving]
  - Daydreaming [Recovering/Resolving]
  - Apathy [Recovering/Resolving]
  - Balance disorder [Recovering/Resolving]
